FAERS Safety Report 7730557-4 (Version None)
Quarter: 2011Q3

REPORT INFORMATION
  Report Type: 
  Country: None (occurrence: None)
  Receive Date: 20110906
  Receipt Date: 20110825
  Transmission Date: 20111222
  Serious: Yes (Other)
  Sender: FDA-Public Use
  Company Number: JP-ASTRAZENECA-2011SE47707

PATIENT
  Age: 17981 Day
  Sex: Male

DRUGS (30)
  1. LASIX [Concomitant]
     Dates: start: 20110317, end: 20110318
  2. CONCENTRATED HUMAN BLOOD PLATELET [Concomitant]
     Dates: start: 20110315, end: 20110315
  3. CONCENTRATED HUMAN RED BLOOD CELLS [Concomitant]
     Dates: start: 20110318, end: 20110318
  4. ITRACONAZOLE [Suspect]
     Route: 048
     Dates: end: 20110319
  5. URSO 250 [Concomitant]
     Route: 048
  6. ACETAMINOPHEN [Concomitant]
     Route: 048
     Dates: end: 20110315
  7. CONCENTRATED HUMAN BLOOD PLATELET [Concomitant]
     Dates: start: 20110317, end: 20110318
  8. CONCENTRATED HUMAN RED BLOOD CELLS [Concomitant]
     Dates: start: 20110320, end: 20110320
  9. MEROPENEM [Suspect]
     Route: 042
     Dates: start: 20110315, end: 20110316
  10. MEROPENEM [Suspect]
     Route: 042
     Dates: start: 20110320, end: 20110321
  11. ACYCLOVIR [Suspect]
     Route: 048
  12. PROGRAF [Suspect]
     Dates: start: 20110303
  13. KAKODIN [Concomitant]
     Dates: start: 20110318, end: 20110319
  14. CONCENTRATED HUMAN BLOOD PLATELET [Concomitant]
     Dates: start: 20110321, end: 20110321
  15. LANSOPRAZOLE [Concomitant]
     Route: 042
     Dates: start: 20110315
  16. FUNGUARD [Concomitant]
     Dates: start: 20110314
  17. SOLU-CORTEF [Concomitant]
     Dates: start: 20110317, end: 20110328
  18. MEROPENEM [Suspect]
     Indication: FEBRILE NEUTROPENIA
     Route: 042
     Dates: start: 20110314, end: 20110314
  19. MEROPENEM [Suspect]
     Route: 042
     Dates: start: 20110317, end: 20110317
  20. VANCOMYCIN HYCHLORIDE [Suspect]
     Dates: start: 20110315, end: 20110323
  21. POLARAMINE [Concomitant]
     Dates: start: 20110315, end: 20110321
  22. HANP [Concomitant]
     Dates: start: 20110318, end: 20110319
  23. MEROPENEM [Suspect]
     Route: 042
     Dates: start: 20110319, end: 20110319
  24. DORIPENEM MONOHYDRATE [Concomitant]
     Dates: start: 20110321
  25. PREDNISOLONE [Concomitant]
     Dates: start: 20110318
  26. HEPAGUMIN [Concomitant]
     Route: 042
  27. MEROPENEM [Suspect]
     Route: 042
     Dates: start: 20110318, end: 20110318
  28. LANSOPRAZOLE [Concomitant]
     Route: 048
     Dates: end: 20110319
  29. MIYA BM [Concomitant]
     Route: 048
     Dates: end: 20110319
  30. LOXONIN [Concomitant]
     Route: 048
     Dates: start: 20110315, end: 20110317

REACTIONS (2)
  - RENAL FAILURE ACUTE [None]
  - ENGRAFTMENT SYNDROME [None]
